FAERS Safety Report 25912298 (Version 1)
Quarter: 2025Q4

REPORT INFORMATION
  Report Type: Spontaneous
  Country: CN (occurrence: CN)
  Receive Date: 20251013
  Receipt Date: 20251013
  Transmission Date: 20260117
  Serious: Yes (Other)
  Sender: BAXTER
  Company Number: CN-MLMSERVICE-20250929-PI662656-00128-1

PATIENT
  Age: 35 Year
  Sex: Female

DRUGS (6)
  1. CYCLOPHOSPHAMIDE [Suspect]
     Active Substance: CYCLOPHOSPHAMIDE
     Indication: Ewing^s sarcoma
     Dosage: 5 CYCLES, DAY 1, REPEATED EVERY 3 WEEKS (Q3W)
     Route: 042
     Dates: start: 202404, end: 2024
  2. IFOSFAMIDE [Suspect]
     Active Substance: IFOSFAMIDE
     Indication: Ewing^s sarcoma
     Dosage: 5 CYCLES, AT DAYS 1 THROUGH 5; THE REGIMEN WAS REPEATED EVERY 3 WEEKS (Q3W)
     Route: 042
     Dates: start: 202404, end: 2024
  3. MESNA [Suspect]
     Active Substance: MESNA
     Dosage: 5 CYCLES, AT 0, 4, AND 8 H POST-CYCLOPHOSPHAMIDE ADMINISTRATION; THE REGIMEN WAS REPEATED EVERY 3 WE
     Route: 042
     Dates: start: 202404, end: 2024
  4. VINCRISTINE [Suspect]
     Active Substance: VINCRISTINE
     Indication: Ewing^s sarcoma
     Dosage: 5 CYCLES, AT DAYS 1; THE REGIMEN WAS REPEATED EVERY 3 WEEKS (Q3W)
     Route: 042
     Dates: start: 202404, end: 2024
  5. DOXORUBICIN [Suspect]
     Active Substance: DOXORUBICIN
     Indication: Ewing^s sarcoma
     Dosage: CONTINUOUS INTRAVENOUS INFUSION OVER 6 H ON DAYS 1 AND 2;  (THE REGIMEN WAS REPEATED EVERY 3 WEEKS (
     Route: 041
     Dates: start: 202404, end: 2024
  6. ETOPOSIDE [Suspect]
     Active Substance: ETOPOSIDE
     Indication: Ewing^s sarcoma
     Dosage: 5 CYCLES, AT DAYS 1 THROUGH 5; THE REGIMEN WAS REPEATED EVERY 3 WEEKS (Q3W)
     Route: 041
     Dates: start: 202404, end: 2024

REACTIONS (1)
  - Myelosuppression [Unknown]
